FAERS Safety Report 6135486-8 (Version None)
Quarter: 2009Q1

REPORT INFORMATION
  Report Type: 
  Country: None (occurrence: None)
  Receive Date: 20090327
  Receipt Date: 20090320
  Transmission Date: 20090719
  Serious: Yes (Other)
  Sender: FDA-Public Use
  Company Number: A0775506A

PATIENT
  Age: 68 Year
  Sex: Male
  Weight: 111.8 kg

DRUGS (4)
  1. AVANDIA [Suspect]
     Indication: DIABETES MELLITUS
     Dosage: 4MG THREE TIMES PER DAY
     Route: 048
     Dates: start: 20050305, end: 20060101
  2. STARLIX [Concomitant]
  3. VYTORIN [Concomitant]
  4. LIPITOR [Concomitant]

REACTIONS (1)
  - CORONARY ARTERY BYPASS [None]
